FAERS Safety Report 24286748 (Version 1)
Quarter: 2024Q3

REPORT INFORMATION
  Report Type: Report from Study
  Country: PH (occurrence: PH)
  Receive Date: 20240905
  Receipt Date: 20240905
  Transmission Date: 20241017
  Serious: Yes (Death)
  Sender: OTSUKA
  Company Number: PH-OTSUKA-2024_021477

PATIENT
  Sex: Female

DRUGS (1)
  1. TOLVAPTAN [Suspect]
     Active Substance: TOLVAPTAN
     Indication: Blood sodium decreased
     Dosage: 0.5 DF, QD (SAMSCA 15MG 1/2 TABLET A DAY)
     Route: 048
     Dates: start: 202406

REACTIONS (4)
  - Pneumonia [Fatal]
  - Lung opacity [Fatal]
  - Underdose [Unknown]
  - Wrong technique in product usage process [Unknown]
